FAERS Safety Report 4728121-4 (Version None)
Quarter: 2005Q3

REPORT INFORMATION
  Report Type: 
  Country: None (occurrence: None)
  Receive Date: 20050728
  Receipt Date: 20050728
  Transmission Date: 20060218
  Serious: Yes (Other)
  Sender: FDA-Public Use
  Company Number: None

PATIENT
  Age: 16 Year
  Sex: Female
  Weight: 96.1626 kg

DRUGS (1)
  1. TOPAMAX [Suspect]
     Indication: MIGRAINE
     Dosage: SEE IMAGE
     Dates: start: 20041020, end: 20050727

REACTIONS (8)
  - AGGRESSION [None]
  - ALOPECIA [None]
  - AMNESIA [None]
  - ASTHENIA [None]
  - CONFUSIONAL STATE [None]
  - IRRITABILITY [None]
  - MOOD SWINGS [None]
  - SOMNOLENCE [None]
